FAERS Safety Report 10085127 (Version 1)
Quarter: 2014Q2

REPORT INFORMATION
  Report Type: Spontaneous
  Country: US (occurrence: US)
  Receive Date: 20140417
  Receipt Date: 20140417
  Transmission Date: 20141212
  Serious: Yes (Death, Other)
  Sender: FDA-Public Use
  Company Number: CHPA2014US005410

PATIENT
  Sex: Male

DRUGS (1)
  1. HABITROL - UNKNOWN STRENGTH [Suspect]
     Dosage: A WHOLE BOX, UNK
     Route: 062
     Dates: end: 2010

REACTIONS (2)
  - Death [Fatal]
  - Overdose [Unknown]
